FAERS Safety Report 10595404 (Version 1)
Quarter: 2014Q4

REPORT INFORMATION
  Report Type: Spontaneous
  Country: US (occurrence: None)
  Receive Date: 20141119
  Receipt Date: 20141119
  Transmission Date: 20150529
  Serious: Yes (Other)
  Sender: FDA-Public Use
  Company Number: None

PATIENT
  Age: 54 Year
  Sex: Female
  Weight: 113.4 kg

DRUGS (3)
  1. XOLAIR [Suspect]
     Active Substance: OMALIZUMAB
     Indication: INFLAMMATION
     Dosage: TWO INJECTIONS, ONCE A MONTH, INTO THE MUSCLE
     Dates: start: 20141020
  2. XOLAIR [Suspect]
     Active Substance: OMALIZUMAB
     Indication: ASTHMA
     Dosage: TWO INJECTIONS, ONCE A MONTH, INTO THE MUSCLE
     Dates: start: 20141020
  3. XOLAIR [Suspect]
     Active Substance: OMALIZUMAB
     Indication: LUNG DISORDER
     Dosage: TWO INJECTIONS, ONCE A MONTH, INTO THE MUSCLE
     Dates: start: 20141020

REACTIONS (4)
  - Inflammation [None]
  - Condition aggravated [None]
  - Lung disorder [None]
  - Chest discomfort [None]

NARRATIVE: CASE EVENT DATE: 20141020
